FAERS Safety Report 5596845-5 (Version None)
Quarter: 2008Q1

REPORT INFORMATION
  Report Type: 
  Country: None (occurrence: None)
  Receive Date: 20080119
  Receipt Date: 20080109
  Transmission Date: 20080703
  Serious: Yes (Other)
  Sender: FDA-Public Use
  Company Number: US-PFIZER INC-2008003994

PATIENT
  Age: 31 Year
  Sex: Female

DRUGS (4)
  1. CHANTIX [Suspect]
  2. WELLBUTRIN [Concomitant]
  3. NUVARING [Concomitant]
  4. VITAMIN CAP [Concomitant]

REACTIONS (1)
  - RECTAL HAEMORRHAGE [None]
